FAERS Safety Report 4723002-4 (Version None)
Quarter: 2005Q3

REPORT INFORMATION
  Report Type: 
  Country: None (occurrence: None)
  Receive Date: 20050719
  Receipt Date: 20040713
  Transmission Date: 20060218
  Serious: Yes (Hospitalization)
  Sender: FDA-Public Use
  Company Number: 2004216161US

PATIENT
  Age: 89 Year
  Sex: Female
  Weight: 70.3 kg

DRUGS (6)
  1. CELEBREX [Suspect]
     Indication: ARTHRITIS
     Dosage: 1 DF, QD; 2 DF, QD
     Dates: start: 19990401, end: 20040101
  2. CELEBREX [Suspect]
     Indication: ARTHRITIS
     Dosage: 1 DF, QD; 2 DF, QD
     Dates: start: 20040101, end: 20040320
  3. FOSAMAX [Suspect]
     Dosage: 70 MG, WEEKLY, ORAL
     Route: 048
     Dates: start: 20030512, end: 20040319
  4. GLUCOSAMINE W/CHONDROITIN SULFATES (MAGNESE, GLUCOSAMINE SULFATE) [Concomitant]
  5. MULTIVITAMINS (ERGOCALCIFEROL, RETINOL, PANTHENOL) [Concomitant]
  6. TYLENOL [Concomitant]

REACTIONS (1)
  - GASTRIC ULCER HAEMORRHAGE [None]
